FAERS Safety Report 15121333 (Version 2)
Quarter: 2018Q3

REPORT INFORMATION
  Report Type: Spontaneous
  Country: BR (occurrence: BR)
  Receive Date: 20180709
  Receipt Date: 20180713
  Transmission Date: 20181010
  Serious: No
  Sender: FDA-Public Use
  Company Number: BR-PFIZER INC-2018270327

PATIENT
  Sex: Female

DRUGS (1)
  1. FRONTAL [Suspect]
     Active Substance: ALPRAZOLAM
     Dosage: 0.5 DF, UNK

REACTIONS (1)
  - Contraindicated product administered [Unknown]
